FAERS Safety Report 9007221 (Version 1)
Quarter: 2013Q1

REPORT INFORMATION
  Report Type: Report from Study
  Country: CA (occurrence: CA)
  Receive Date: 20130110
  Receipt Date: 20130110
  Transmission Date: 20140127
  Serious: Yes (Hospitalization, Other)
  Sender: FDA-Public Use
  Company Number: CA-ABBOTT-13P-028-1031848-00

PATIENT
  Sex: Female

DRUGS (4)
  1. HUMIRA [Suspect]
     Indication: PSORIATIC ARTHROPATHY
     Route: 058
     Dates: start: 20050318, end: 2012
  2. PREDNISONE [Concomitant]
     Indication: PRODUCT USED FOR UNKNOWN INDICATION
  3. DILAUDID [Concomitant]
     Indication: PRODUCT USED FOR UNKNOWN INDICATION
  4. METHOTREXATE [Concomitant]
     Indication: PRODUCT USED FOR UNKNOWN INDICATION

REACTIONS (11)
  - Muscle spasms [Unknown]
  - Dyspnoea [Unknown]
  - Chest pain [Unknown]
  - Tachycardia [Unknown]
  - Hypertension [Unknown]
  - Palpitations [Unknown]
  - Hyperhidrosis [Unknown]
  - Lymphoma [Unknown]
  - Dysphagia [Unknown]
  - Nervous system disorder [Unknown]
  - Orthostatic intolerance [Unknown]
